FAERS Safety Report 14383979 (Version 1)
Quarter: 2018Q1

REPORT INFORMATION
  Report Type: Report from Study
  Country: US (occurrence: US)
  Receive Date: 20180115
  Receipt Date: 20180115
  Transmission Date: 20180509
  Serious: Yes (Other)
  Sender: FDA-Public Use
  Company Number: US-BAYER-2018-002897

PATIENT
  Age: 60 Year
  Sex: Male

DRUGS (5)
  1. MEROPENEM. [Suspect]
     Active Substance: MEROPENEM
     Indication: OTITIS EXTERNA
     Dosage: UNK
     Route: 042
  2. AMIKACIN [Concomitant]
     Active Substance: AMIKACIN
  3. CIPROFLOXACIN. [Suspect]
     Active Substance: CIPROFLOXACIN
     Indication: OTITIS EXTERNA
     Dosage: UNK
  4. MEROPENEM. [Suspect]
     Active Substance: MEROPENEM
     Indication: OTITIS EXTERNA
     Dosage: UNK
  5. OXYGEN. [Concomitant]
     Active Substance: OXYGEN
     Dosage: UNK

REACTIONS (6)
  - Subcutaneous abscess [None]
  - Osteonecrosis [None]
  - Multiple-drug resistance [None]
  - Temporomandibular joint syndrome [Not Recovered/Not Resolved]
  - Treatment failure [None]
  - Pathogen resistance [None]
